FAERS Safety Report 24631689 (Version 3)
Quarter: 2025Q2

REPORT INFORMATION
  Report Type: Spontaneous
  Country: US (occurrence: US)
  Receive Date: 20241118
  Receipt Date: 20250626
  Transmission Date: 20250716
  Serious: Yes (Life-Threatening, Hospitalization, Other)
  Sender: BAYER HEALTHCARE PHARMACEUTICALS INC.
  Company Number: US-BAYER-2024A162474

PATIENT
  Age: 28 Year
  Sex: Female

DRUGS (1)
  1. SKYLA [Suspect]
     Active Substance: LEVONORGESTREL
     Indication: Contraception
     Dosage: 14?G/DAY
     Route: 015
     Dates: start: 20230607, end: 20240905

REACTIONS (14)
  - Ectopic pregnancy with contraceptive device [Recovered/Resolved with Sequelae]
  - Haemorrhage in pregnancy [None]
  - Drug ineffective [None]
  - Abdominal pain lower [None]
  - Product quality issue [None]
  - Grief reaction [None]
  - Anxiety [None]
  - Procedural pain [None]
  - Emotional distress [None]
  - Impaired work ability [None]
  - Heart rate irregular [None]
  - Depression [None]
  - General physical health deterioration [None]
  - Reproductive tract procedural complication [None]

NARRATIVE: CASE EVENT DATE: 20240905
